FAERS Safety Report 6830783-2 (Version None)
Quarter: 2010Q3

REPORT INFORMATION
  Report Type: 
  Country: None (occurrence: None)
  Receive Date: 20100712
  Receipt Date: 20100702
  Transmission Date: 20110219
  Serious: Yes (Hospitalization)
  Sender: FDA-Public Use
  Company Number: PHHO2009ES13081

PATIENT
  Sex: Male
  Weight: 65 kg

DRUGS (5)
  1. CERTICAN [Suspect]
     Indication: RENAL TRANSPLANT
     Dosage: 5MG
     Route: 048
     Dates: start: 20080705, end: 20080926
  2. MYFORTIC [Suspect]
     Indication: RENAL TRANSPLANT
     Dosage: 1080 DAILY
     Route: 048
     Dates: end: 20080729
  3. MYFORTIC [Suspect]
     Dosage: 360 MG, BID
     Route: 048
     Dates: start: 20080730, end: 20080801
  4. MYFORTIC [Suspect]
     Dosage: 1080 MG DAILY
     Route: 048
     Dates: start: 20080802
  5. TACROLIMUS [Suspect]
     Indication: RENAL TRANSPLANT
     Dosage: UNK
     Dates: start: 20080305

REACTIONS (4)
  - ABDOMINAL PAIN [None]
  - LEUKOPENIA [None]
  - NEUTROPENIA [None]
  - PYREXIA [None]
